FAERS Safety Report 5671558-X (Version None)
Quarter: 2008Q1

REPORT INFORMATION
  Report Type: 
  Country: None (occurrence: None)
  Receive Date: 20080318
  Receipt Date: 20080306
  Transmission Date: 20080703
  Serious: Yes (Hospitalization)
  Sender: FDA-Public Use
  Company Number: FR-PFIZER INC-2008023421

PATIENT
  Sex: Male

DRUGS (21)
  1. CHAMPIX [Suspect]
     Dosage: TEXT:1DF
     Route: 048
     Dates: start: 20070505, end: 20070611
  2. BREXIN [Suspect]
     Route: 048
  3. NAPROXEN [Suspect]
     Route: 048
  4. COMBIVENT [Concomitant]
  5. FORMOTEROL FUMARATE [Concomitant]
  6. FENSPIRIDE HYDROCHLORIDE [Concomitant]
  7. TIOTROPIUM [Concomitant]
  8. RABEPRAZOLE SODIUM [Concomitant]
  9. ACETYLSALICYLATE LYSINE [Concomitant]
  10. ROSUVASTATIN [Concomitant]
  11. ASPIRIN/PRAVASTATINE [Concomitant]
  12. TRINITRINE [Concomitant]
  13. NICOTINE [Concomitant]
  14. OXAZEPAM [Concomitant]
  15. PIROXICAM [Concomitant]
  16. CAFFEINE/OPIUM/PARACETAMOL [Concomitant]
  17. DICLOFENAC [Concomitant]
  18. FENTANYL CITRATE [Concomitant]
  19. CODEINE PHOSPHATE HEMIHYDRATE [Concomitant]
  20. MORPHINE SULFATE [Concomitant]
  21. PREDNISONE [Concomitant]

REACTIONS (3)
  - CONDITION AGGRAVATED [None]
  - DYSPNOEA [None]
  - TACHYCARDIA [None]
